FAERS Safety Report 16218913 (Version 6)
Quarter: 2019Q4

REPORT INFORMATION
  Report Type: Spontaneous
  Country: US (occurrence: US)
  Receive Date: 20190419
  Receipt Date: 20191202
  Transmission Date: 20200122
  Serious: Yes (Congenital Anomaly, Other)
  Sender: FDA-Public Use
  Company Number: PHEH2019US016643

PATIENT
  Age: 0 Day
  Sex: Male

DRUGS (1)
  1. ZOFRAN [Suspect]
     Active Substance: ONDANSETRON HYDROCHLORIDE
     Indication: FOETAL EXPOSURE DURING PREGNANCY
     Dosage: MOTHER DOSE: 04 MG, UNK
     Route: 064

REACTIONS (20)
  - Cleft lip and palate [Unknown]
  - Malocclusion [Unknown]
  - Nasal obstruction [Unknown]
  - Urinary tract infection [Unknown]
  - Wound [Unknown]
  - Otitis media chronic [Unknown]
  - Foetal exposure during pregnancy [Unknown]
  - Otorrhoea [Unknown]
  - Upper respiratory tract infection [Unknown]
  - Croup infectious [Unknown]
  - Snoring [Unknown]
  - Pyrexia [Unknown]
  - Conductive deafness [Unknown]
  - Foetal distress syndrome [Unknown]
  - Velopharyngeal incompetence [Unknown]
  - Ear pain [Unknown]
  - Tympanic membrane atrophic [Unknown]
  - Micrognathia [Unknown]
  - Pneumonia [Unknown]
  - Speech disorder [Unknown]

NARRATIVE: CASE EVENT DATE: 19990412
